FAERS Safety Report 7991549-3 (Version None)
Quarter: 2011Q4

REPORT INFORMATION
  Report Type: 
  Country: None (occurrence: None)
  Receive Date: 20111219
  Receipt Date: 20111213
  Transmission Date: 20120403
  Serious: Yes (Other)
  Sender: FDA-Public Use
  Company Number: US-PFIZER INC-2011127694

PATIENT
  Sex: Female
  Weight: 63.492 kg

DRUGS (3)
  1. ZOLOFT [Suspect]
     Indication: OBSESSIVE-COMPULSIVE DISORDER
     Dosage: 100 MG, UNK
     Route: 048
     Dates: end: 20090901
  2. ZOLOFT [Suspect]
     Dosage: UNK
     Route: 048
     Dates: start: 20110101, end: 20110701
  3. ZOLOFT [Suspect]
     Dosage: 200MG, DAILY
     Route: 048
     Dates: start: 20111001

REACTIONS (4)
  - DRUG INEFFECTIVE [None]
  - OBSESSIVE-COMPULSIVE DISORDER [None]
  - MALAISE [None]
  - PSYCHIATRIC DECOMPENSATION [None]
